FAERS Safety Report 9921115 (Version 2)
Quarter: 2014Q2

REPORT INFORMATION
  Report Type: Spontaneous
  Country: US (occurrence: US)
  Receive Date: 20140225
  Receipt Date: 20140508
  Transmission Date: 20141212
  Serious: Yes (Hospitalization, Other)
  Sender: FDA-Public Use
  Company Number: 2014SP000963

PATIENT
  Age: 28 Year
  Sex: Female

DRUGS (28)
  1. METHOTREXATE [Suspect]
     Indication: PRODUCT USED FOR UNKNOWN INDICATION
  2. REMICADE [Suspect]
     Indication: PRODUCT USED FOR UNKNOWN INDICATION
  3. HYDROXYCHLOROQUINE [Suspect]
     Indication: PRODUCT USED FOR UNKNOWN INDICATION
  4. ENBREL [Suspect]
     Indication: PSORIATIC ARTHROPATHY
     Dates: start: 2001, end: 2001
  5. ENBREL [Suspect]
     Indication: PSORIATIC ARTHROPATHY
     Dates: start: 201307, end: 201307
  6. ENBREL [Suspect]
     Indication: PSORIATIC ARTHROPATHY
     Route: 058
     Dates: start: 20140211
  7. ATENOLOL [Concomitant]
  8. CLONAZEPAM [Concomitant]
  9. B12 /00056201/ [Concomitant]
  10. DOXEPIN [Concomitant]
  11. FAMOTIDINE [Concomitant]
  12. GABAPENTIN [Concomitant]
  13. PREDNISONE [Concomitant]
  14. HYDROXYZINE [Concomitant]
  15. NEXIUM /01479302/ [Concomitant]
  16. NYSTATIN [Concomitant]
  17. OXYMORPHONE [Concomitant]
  18. RIZATRIPTAN [Concomitant]
  19. SERTRALINE [Concomitant]
  20. SINGULAIR [Concomitant]
  21. SPIRIVA [Concomitant]
  22. SYMBICORT [Concomitant]
  23. SYNTHROID [Concomitant]
  24. TIZANIDINE [Concomitant]
  25. TOPIRAMATE [Concomitant]
  26. WARFARIN [Concomitant]
  27. XOPENEX [Concomitant]
  28. ZYRTEC [Concomitant]

REACTIONS (20)
  - Nephrolithiasis [Recovered/Resolved]
  - Urticaria [Not Recovered/Not Resolved]
  - Infection susceptibility increased [Not Recovered/Not Resolved]
  - Staphylococcal infection [Recovered/Resolved]
  - Cough [Recovered/Resolved]
  - Productive cough [Recovered/Resolved]
  - Sputum discoloured [Recovered/Resolved]
  - Dysgeusia [Recovered/Resolved]
  - Upper respiratory tract infection [Recovered/Resolved]
  - Memory impairment [Not Recovered/Not Resolved]
  - Contusion [Not Recovered/Not Resolved]
  - Nasopharyngitis [Recovered/Resolved]
  - Vomiting [Recovered/Resolved]
  - Nausea [Recovered/Resolved]
  - Acne [Not Recovered/Not Resolved]
  - Skin abrasion [Not Recovered/Not Resolved]
  - Injection site reaction [Not Recovered/Not Resolved]
  - Injection site urticaria [Recovered/Resolved]
  - Injection site swelling [Not Recovered/Not Resolved]
  - Injection site erythema [Not Recovered/Not Resolved]
